FAERS Safety Report 8695066 (Version 2)
Quarter: 2012Q4

REPORT INFORMATION
  Report Type: 
  Country: US (occurrence: US)
  Receive Date: 20120731
  Receipt Date: 20121228
  Transmission Date: 20130627
  Serious: No
  Sender: FDA-Public Use
  Company Number: US-009507513-1207USA005241

PATIENT
  Sex: Female

DRUGS (3)
  1. JANUMET XR [Suspect]
     Indication: DIABETES MELLITUS
     Dosage: 50/1000mg, bid
     Route: 048
     Dates: start: 201204, end: 201207
  2. VICODIN [Concomitant]
     Dosage: UNK
  3. TRAMADOL HYDROCHLORIDE [Concomitant]

REACTIONS (8)
  - Eating disorder [Recovering/Resolving]
  - Dizziness [Recovering/Resolving]
  - Nausea [Recovering/Resolving]
  - Vertigo [Unknown]
  - Heart rate increased [Unknown]
  - Mobility decreased [Unknown]
  - Decreased appetite [Recovering/Resolving]
  - Weight decreased [Recovering/Resolving]
